FAERS Safety Report 15616620 (Version 1)
Quarter: 2018Q4

REPORT INFORMATION
  Report Type: Spontaneous
  Country: FR (occurrence: FR)
  Receive Date: 20181114
  Receipt Date: 20181114
  Transmission Date: 20190205
  Serious: Yes (Life-Threatening, Hospitalization)
  Sender: FDA-Public Use
  Company Number: FR-PFIZER INC-2018463984

PATIENT
  Age: 63 Year
  Sex: Female

DRUGS (3)
  1. BIRODOGYL [Interacting]
     Active Substance: METRONIDAZOLE\SPIRAMYCIN
     Indication: INFECTION
     Dosage: 2 DF, DAILY
     Route: 048
     Dates: start: 20180927, end: 20180930
  2. BISOCE [Interacting]
     Active Substance: BISOPROLOL
     Indication: CARDIAC FAILURE
     Dosage: 1 DF, DAILY
     Route: 048
     Dates: start: 2018
  3. CORDARONE [Suspect]
     Active Substance: AMIODARONE HYDROCHLORIDE
     Indication: TACHYCARDIA
     Dosage: 1 DF, DAILY
     Route: 048
     Dates: start: 2018

REACTIONS (2)
  - Drug interaction [Recovered/Resolved]
  - Cardiac arrest [Recovered/Resolved]

NARRATIVE: CASE EVENT DATE: 20180930
